FAERS Safety Report 21463156 (Version 1)
Quarter: 2022Q4

REPORT INFORMATION
  Report Type: Spontaneous
  Country: NO (occurrence: NO)
  Receive Date: 20221017
  Receipt Date: 20221017
  Transmission Date: 20230112
  Serious: Yes (Hospitalization)
  Sender: FDA-Public Use
  Company Number: None

PATIENT
  Age: 80 Year
  Sex: Male

DRUGS (1)
  1. ENOXAPARIN [Suspect]
     Active Substance: ENOXAPARIN
     Indication: Atrial fibrillation
     Dosage: 10000 IU, Q12H

REACTIONS (2)
  - Swelling [Recovering/Resolving]
  - Haematoma muscle [Recovering/Resolving]

NARRATIVE: CASE EVENT DATE: 20220101
